FAERS Safety Report 5790328-5 (Version None)
Quarter: 2008Q2

REPORT INFORMATION
  Report Type: 
  Country: None (occurrence: None)
  Receive Date: 20080626
  Receipt Date: 20080304
  Transmission Date: 20081010
  Serious: No
  Sender: FDA-Public Use
  Company Number: A0708639A

PATIENT

DRUGS (1)
  1. ALLI [Suspect]

REACTIONS (9)
  - ANOREXIA [None]
  - CHANGE OF BOWEL HABIT [None]
  - FREQUENT BOWEL MOVEMENTS [None]
  - GASTROINTESTINAL DISORDER [None]
  - INFECTION [None]
  - PHARYNGITIS STREPTOCOCCAL [None]
  - RECTAL DISCHARGE [None]
  - THERAPEUTIC RESPONSE UNEXPECTED [None]
  - THIRST [None]
